FAERS Safety Report 18543559 (Version 6)
Quarter: 2021Q1

REPORT INFORMATION
  Report Type: Report from Study
  Country: CA (occurrence: CA)
  Receive Date: 20201124
  Receipt Date: 20210329
  Transmission Date: 20210419
  Serious: Yes (Hospitalization, Other)
  Sender: FDA-Public Use
  Company Number: CA-SHIRE-CA201935835AA

PATIENT
  Age: 74 Year
  Sex: Male
  Weight: 67.57 kg

DRUGS (30)
  1. CALCIUM [Concomitant]
     Active Substance: CALCIUM
     Dosage: 1250 MILLIGRAM, QD
     Route: 048
     Dates: start: 202103
  2. TYLENOL [Concomitant]
     Active Substance: ACETAMINOPHEN
  3. VITAMIN D [COLECALCIFEROL] [Concomitant]
     Active Substance: CHOLECALCIFEROL
     Dosage: 1000 DOSAGE FORM, QD
     Route: 048
     Dates: start: 202103
  4. SELEGILINE [Concomitant]
     Active Substance: SELEGILINE
  5. VELAGLUCERASE ALFA [Suspect]
     Active Substance: VELAGLUCERASE ALFA
     Dosage: 60 INTERNATIONAL UNIT, Q2WEEKS
     Route: 065
     Dates: start: 20160115
  6. LIPITOR [Concomitant]
     Active Substance: ATORVASTATIN CALCIUM
     Dosage: UNK
     Route: 065
  7. POTASSIUM CHLORIDE. [Concomitant]
     Active Substance: POTASSIUM CHLORIDE
     Dosage: 600 MILLIGRAM, QD
     Route: 048
     Dates: start: 202103
  8. VELAGLUCERASE ALFA [Suspect]
     Active Substance: VELAGLUCERASE ALFA
     Dosage: 2000 INTERNATIONAL UNIT, Q2WEEKS
     Route: 065
     Dates: start: 20160115
  9. BOSENTAN. [Concomitant]
     Active Substance: BOSENTAN
     Dosage: 125 MILLIGRAM, BID
     Route: 048
     Dates: start: 202103
  10. ATORVASTATIN [Concomitant]
     Active Substance: ATORVASTATIN
     Dosage: 20 MILLIGRAM, QD
     Route: 048
     Dates: start: 202103
  11. SPIRONOLACTONE. [Concomitant]
     Active Substance: SPIRONOLACTONE
     Dosage: 25 MILLIGRAM, QD
     Route: 048
     Dates: start: 202103
  12. VELAGLUCERASE ALFA [Suspect]
     Active Substance: VELAGLUCERASE ALFA
     Dosage: 5 DOSAGE FORM, 2/WEEK
     Route: 065
     Dates: start: 20160115
  13. VELAGLUCERASE ALFA [Suspect]
     Active Substance: VELAGLUCERASE ALFA
     Dosage: 5 DOSAGE FORM, Q2WEEKS
     Route: 065
     Dates: start: 20160115
  14. NORVASK [AMLODIPINE] [Concomitant]
     Dosage: UNK
     Route: 065
  15. RAMIPRIL. [Concomitant]
     Active Substance: RAMIPRIL
     Dosage: UNK
     Route: 065
  16. POLYETHYLENE GLYCOL [Concomitant]
     Active Substance: POLYETHYLENE GLYCOLS
     Dosage: 17 GRAM, PRN
     Route: 048
     Dates: start: 202103
  17. FUROSEMIDE. [Concomitant]
     Active Substance: FUROSEMIDE
     Dosage: 80 MILLIGRAM
     Route: 048
     Dates: start: 202103
  18. LEVOTHYROXINE. [Concomitant]
     Active Substance: LEVOTHYROXINE
     Dosage: 0.075 MILLIGRAM, QD
     Route: 048
     Dates: start: 202103
  19. SALMETEROL [Concomitant]
     Active Substance: SALMETEROL
     Dosage: 1 DOSAGE FORM, QD
     Route: 050
     Dates: start: 202103
  20. RANITINE [Concomitant]
     Active Substance: RANITIDINE HYDROCHLORIDE
     Dosage: 150 MILLIGRAM, QD
     Route: 048
     Dates: start: 202103
  21. FLUTICASONE PROPIONATE. [Concomitant]
     Active Substance: FLUTICASONE PROPIONATE
     Dosage: 1 DOSAGE FORM, QD
     Route: 050
     Dates: start: 202103
  22. TAMSULOSIN [Concomitant]
     Active Substance: TAMSULOSIN
     Dosage: 0.4 MILLIGRAM, QD
     Route: 048
     Dates: start: 202103
  23. FLUTICASONE. [Concomitant]
     Active Substance: FLUTICASONE
     Dosage: 1 DOSAGE FORM, QD
     Route: 050
     Dates: start: 202103
  24. VELAGLUCERASE ALFA [Suspect]
     Active Substance: VELAGLUCERASE ALFA
     Indication: GAUCHER^S DISEASE
     Dosage: 2000 INTERNATIONAL UNIT, 2X A WEEK
     Route: 065
     Dates: start: 20160115
  25. VELAGLUCERASE ALFA [Suspect]
     Active Substance: VELAGLUCERASE ALFA
     Dosage: 2000 INTERNATIONAL UNIT, UNKNOWN
     Route: 065
     Dates: start: 20160115
  26. CEREZYME [Concomitant]
     Active Substance: IMIGLUCERASE
     Route: 065
  27. ZAVESCA [Concomitant]
     Active Substance: MIGLUSTAT
     Route: 065
  28. BISOPROLOL [Concomitant]
     Active Substance: BISOPROLOL
     Dosage: 2.5 MILLIGRAM, QD
     Route: 048
     Dates: start: 202103
  29. RIVAROXABAN [Concomitant]
     Active Substance: RIVAROXABAN
     Dosage: 20 MILLIGRAM, QD
     Route: 048
     Dates: start: 202103
  30. METOLAZONE. [Concomitant]
     Active Substance: METOLAZONE
     Dosage: 2.5 MILLIGRAM, 1/WEEK
     Route: 048
     Dates: start: 202103

REACTIONS (25)
  - Oxygen saturation decreased [Recovering/Resolving]
  - Dyspnoea [Recovering/Resolving]
  - Asthenia [Unknown]
  - Eye haemorrhage [Recovered/Resolved]
  - Deep vein thrombosis [Unknown]
  - Pain in extremity [Recovered/Resolved]
  - Fatigue [Not Recovered/Not Resolved]
  - Blood pressure fluctuation [Unknown]
  - Pain [Unknown]
  - Bone pain [Not Recovered/Not Resolved]
  - Contusion [Recovered/Resolved]
  - Nausea [Not Recovered/Not Resolved]
  - Syncope [Unknown]
  - Cerebral haemorrhage [Recovered/Resolved]
  - Fall [Recovered/Resolved]
  - Rib fracture [Recovering/Resolving]
  - Dizziness [Unknown]
  - Swelling [Recovered/Resolved]
  - Abdominal pain [Not Recovered/Not Resolved]
  - Gait inability [Unknown]
  - Type 2 diabetes mellitus [Unknown]
  - Weight fluctuation [Not Recovered/Not Resolved]
  - Arthralgia [Recovered/Resolved]
  - Blood pressure increased [Recovered/Resolved]
  - Inappropriate schedule of product administration [Unknown]

NARRATIVE: CASE EVENT DATE: 2020
